FAERS Safety Report 18665445 (Version 1)
Quarter: 2020Q4

REPORT INFORMATION
  Report Type: Spontaneous
  Country: CH (occurrence: CH)
  Receive Date: 20201225
  Receipt Date: 20201225
  Transmission Date: 20210114
  Serious: Yes (Hospitalization, Other)
  Sender: FDA-Public Use
  Company Number: CH-GLAXOSMITHKLINE-CH2020254602

PATIENT
  Age: 71 Year
  Sex: Female

DRUGS (4)
  1. CRESTIN [Concomitant]
     Indication: HYPERCHOLESTEROLAEMIA
     Dosage: 5 MG, QD (LONG-TERM TREATMENT)
     Route: 048
  2. CLEXANE [Suspect]
     Active Substance: ENOXAPARIN SODIUM
     Indication: PROPHYLAXIS
     Dosage: 40 MG, QD
     Route: 058
     Dates: start: 20201117, end: 20201119
  3. DICLOFENAC SODIUM. [Suspect]
     Active Substance: DICLOFENAC SODIUM
     Indication: SYMPTOMATIC TREATMENT
     Dosage: 50 MG, QD
     Route: 048
     Dates: start: 20201117, end: 20201119
  4. DAFALGAN [Concomitant]
     Active Substance: ACETAMINOPHEN
     Indication: SYMPTOMATIC TREATMENT
     Dosage: 1 G, PRN
     Route: 048
     Dates: start: 20201117

REACTIONS (2)
  - Spinal cord haemorrhage [Recovering/Resolving]
  - Off label use [Unknown]

NARRATIVE: CASE EVENT DATE: 20201117
